FAERS Safety Report 6654798-2 (Version None)
Quarter: 2010Q1

REPORT INFORMATION
  Report Type: 
  Country: None (occurrence: None)
  Receive Date: 20100329
  Receipt Date: 20100325
  Transmission Date: 20100710
  Serious: Yes (Other)
  Sender: FDA-Public Use
  Company Number: US-ASTRAZENECA-2009UW02527

PATIENT
  Age: 38 Year
  Sex: Male
  Weight: 218.6 kg

DRUGS (15)
  1. SEROQUEL [Suspect]
     Indication: BIPOLAR DISORDER
     Route: 048
     Dates: start: 20020718, end: 20080701
  2. SEROQUEL [Suspect]
     Indication: SLEEP DISORDER
     Route: 048
     Dates: start: 20020718, end: 20080701
  3. ZYPREXA [Concomitant]
     Dates: start: 20020718
  4. LITHIUM [Concomitant]
     Dates: start: 20000601
  5. LORAZEPAM [Concomitant]
     Dates: start: 20020401, end: 20050701
  6. DEPAKOTE [Concomitant]
     Route: 048
     Dates: start: 20020718
  7. MIRTAZAPINE [Concomitant]
     Dates: start: 20031001, end: 20050201
  8. GABAPENTIN [Concomitant]
     Dosage: 300 MG TO 400 MG
     Dates: start: 20060501, end: 20080101
  9. CLONAZEPAM [Concomitant]
     Dosage: 0.5 MG TO 1 MG
     Dates: start: 20050801, end: 20080101
  10. CLONIDINE HYDROCHLORIDE [Concomitant]
     Route: 048
  11. CYCLOBENZAPRINE HYDROCHLORIDE [Concomitant]
     Route: 048
  12. DOCUSATE [Concomitant]
     Route: 048
  13. HYDROCHLOROTHIAZIDE [Concomitant]
     Route: 048
  14. PAXIL [Concomitant]
  15. SERZONE [Concomitant]

REACTIONS (5)
  - DIABETES MELLITUS INADEQUATE CONTROL [None]
  - DIABETIC NEUROPATHY [None]
  - MICROALBUMINURIA [None]
  - MULTIPLE INJURIES [None]
  - TYPE 2 DIABETES MELLITUS [None]
